FAERS Safety Report 9115764 (Version 1)
Quarter: 2013Q1

REPORT INFORMATION
  Report Type: Spontaneous
  Country: US (occurrence: None)
  Receive Date: 20130221
  Receipt Date: 20130221
  Transmission Date: 20140127
  Serious: Yes (Other)
  Sender: FDA-Public Use
  Company Number: None

PATIENT
  Sex: Female

DRUGS (1)
  1. AXONA [Suspect]
     Indication: DEMENTIA
     Dates: start: 201212

REACTIONS (7)
  - Gastrointestinal disorder [None]
  - Frequent bowel movements [None]
  - Abdominal distension [None]
  - Loss of consciousness [None]
  - Confusional state [None]
  - Drug ineffective [None]
  - Anxiety [None]
